FAERS Safety Report 9315427 (Version 5)
Quarter: 2013Q4

REPORT INFORMATION
  Report Type: Spontaneous
  Country: IT (occurrence: IT)
  Receive Date: 20130529
  Receipt Date: 20131115
  Transmission Date: 20140711
  Serious: Yes (Hospitalization, Other)
  Sender: FDA-Public Use
  Company Number: IT-MERCK-1305ITA016085

PATIENT
  Age: 62 Year
  Sex: Female
  Weight: 79.5 kg

DRUGS (8)
  1. SYCREST [Suspect]
     Dosage: UNK
     Route: 060
     Dates: end: 201304
  2. LEVOTHYROXINE SODIUM [Concomitant]
  3. AMOXICILLIN (+) CLAVULANIC ACID [Concomitant]
  4. DIURESIX (FUROSEMIDE) [Concomitant]
  5. VERAPAMIL [Concomitant]
  6. XANAX [Concomitant]
  7. MOVICOL [Concomitant]
  8. PERINDOPRIL [Concomitant]

REACTIONS (1)
  - Pulmonary embolism [Unknown]
